FAERS Safety Report 4966086-0 (Version None)
Quarter: 2006Q2

REPORT INFORMATION
  Report Type: 
  Country: None (occurrence: None)
  Receive Date: 20060407
  Receipt Date: 20060330
  Transmission Date: 20061013
  Serious: Yes (Hospitalization)
  Sender: FDA-Public Use
  Company Number: FR-GILEAD-2006-0009387

PATIENT
  Age: 29 Year
  Sex: Female

DRUGS (4)
  1. VIREAD [Suspect]
     Indication: HIV INFECTION
     Route: 048
     Dates: start: 20050701, end: 20051020
  2. EPIVIR [Suspect]
     Indication: HIV INFECTION
     Route: 048
     Dates: start: 20050701, end: 20051020
  3. KALETRA [Suspect]
     Indication: HIV INFECTION
     Route: 048
     Dates: start: 20050701, end: 20051020
  4. BACTRIM [Concomitant]

REACTIONS (4)
  - ABDOMINAL PAIN [None]
  - HYPERLACTACIDAEMIA [None]
  - MUSCLE SPASMS [None]
  - SOMNOLENCE [None]
